FAERS Safety Report 6963202-6 (Version None)
Quarter: 2010Q3

REPORT INFORMATION
  Report Type: 
  Country: None (occurrence: None)
  Receive Date: 20100902
  Receipt Date: 20100826
  Transmission Date: 20110219
  Serious: Yes (Other)
  Sender: FDA-Public Use
  Company Number: GB-ABBOTT-10P-167-0653426-00

PATIENT
  Age: 66 Year
  Sex: Female

DRUGS (9)
  1. VALPROATE SODIUM [Suspect]
     Indication: EPILEPSY
     Route: 048
     Dates: start: 19810901
  2. CLONAZEPAM [Concomitant]
     Indication: PRODUCT USED FOR UNKNOWN INDICATION
     Dates: start: 20070110
  3. CODEINE PHOSPHATE [Concomitant]
     Indication: PRODUCT USED FOR UNKNOWN INDICATION
     Dates: start: 20100629
  4. ADCAL-D3 [Concomitant]
     Indication: PRODUCT USED FOR UNKNOWN INDICATION
     Dates: start: 20100730
  5. LANSOPRAZOLE [Concomitant]
     Indication: PRODUCT USED FOR UNKNOWN INDICATION
     Dates: start: 20100612
  6. HYOSCINE HBR HYT [Concomitant]
     Indication: PRODUCT USED FOR UNKNOWN INDICATION
     Dates: start: 20090501
  7. NORIMIDE [Concomitant]
     Indication: PRODUCT USED FOR UNKNOWN INDICATION
     Dates: start: 20090526
  8. ALL OTHER THERAPEUTIC PRODUCTS [Concomitant]
     Indication: PRODUCT USED FOR UNKNOWN INDICATION
     Dates: start: 20091014
  9. GAVISCON [Concomitant]
     Indication: PRODUCT USED FOR UNKNOWN INDICATION
     Dates: start: 20100210

REACTIONS (22)
  - AMNESIA [None]
  - BALANCE DISORDER [None]
  - BLADDER DISORDER [None]
  - CONFUSIONAL STATE [None]
  - CONVULSION [None]
  - DEAFNESS [None]
  - DIARRHOEA [None]
  - DIZZINESS [None]
  - DRY MOUTH [None]
  - DYSKINESIA [None]
  - DYSPHAGIA [None]
  - DYSPNOEA [None]
  - FATIGUE [None]
  - HAEMORRHAGE [None]
  - INTENTION TREMOR [None]
  - MUSCULAR WEAKNESS [None]
  - PARAESTHESIA [None]
  - RASH PRURITIC [None]
  - SPEECH DISORDER [None]
  - SWELLING [None]
  - VISUAL IMPAIRMENT [None]
  - WEIGHT INCREASED [None]
